FAERS Safety Report 12534276 (Version 1)
Quarter: 2016Q3

REPORT INFORMATION
  Report Type: Report from Study
  Country: US (occurrence: US)
  Receive Date: 20160706
  Receipt Date: 20160706
  Transmission Date: 20161109
  Serious: Yes (Other)
  Sender: FDA-Public Use
  Company Number: US-ABBVIE-16P-163-1669171-00

PATIENT
  Age: 56 Year
  Sex: Female

DRUGS (1)
  1. VIEKIRA PAK [Suspect]
     Active Substance: DASABUVIR\OMBITASVIR\PARITAPREVIR\RITONAVIR
     Indication: CHRONIC HEPATITIS C
     Route: 048
     Dates: start: 20150722, end: 20151014

REACTIONS (7)
  - Blood phosphorus increased [Unknown]
  - Pruritus [Unknown]
  - Vomiting [Unknown]
  - Peritonitis [Unknown]
  - Diarrhoea [Unknown]
  - Clostridium difficile colitis [Unknown]
  - Nausea [Unknown]

NARRATIVE: CASE EVENT DATE: 20150723
